FAERS Safety Report 9750161 (Version 1)
Quarter: 2013Q4

REPORT INFORMATION
  Report Type: Report from Study
  Country: CL (occurrence: CL)
  Receive Date: 20131212
  Receipt Date: 20131212
  Transmission Date: 20140711
  Serious: Yes (Other)
  Sender: FDA-Public Use
  Company Number: PHHY2013CL145565

PATIENT
  Age: 89 Year
  Sex: Female

DRUGS (1)
  1. EXELON [Suspect]
     Dosage: UNK UKN, UNK

REACTIONS (4)
  - Deafness [Not Recovered/Not Resolved]
  - Accident [Not Recovered/Not Resolved]
  - Hand fracture [Not Recovered/Not Resolved]
  - Memory impairment [Unknown]
